FAERS Safety Report 24106240 (Version 1)
Quarter: 2024Q3

REPORT INFORMATION
  Report Type: Spontaneous
  Country: US (occurrence: US)
  Receive Date: 20240717
  Receipt Date: 20240717
  Transmission Date: 20241017
  Serious: No
  Sender: BAUSCH AND LOMB
  Company Number: US-BAUSCH-BL-2024-010666

PATIENT
  Age: 70 Year
  Sex: Female

DRUGS (2)
  1. JUBLIA [Suspect]
     Active Substance: EFINACONAZOLE
     Indication: Onychomycosis
     Dosage: ONCE DAILY AT NIGHT
     Route: 061
     Dates: start: 2024, end: 202407
  2. JUBLIA [Suspect]
     Active Substance: EFINACONAZOLE
     Indication: Product use in unapproved indication

REACTIONS (8)
  - Nail growth abnormal [Not Recovered/Not Resolved]
  - Application site dryness [Not Recovered/Not Resolved]
  - Application site bruise [Not Recovered/Not Resolved]
  - Application site swelling [Not Recovered/Not Resolved]
  - Accidental overdose [Unknown]
  - Product use in unapproved indication [Unknown]
  - Wrong technique in device usage process [Unknown]
  - Device delivery system issue [Unknown]

NARRATIVE: CASE EVENT DATE: 20240101
